FAERS Safety Report 6877867-0 (Version None)
Quarter: 2010Q3

REPORT INFORMATION
  Report Type: 
  Country: None (occurrence: None)
  Receive Date: 20100727
  Receipt Date: 20100715
  Transmission Date: 20110219
  Serious: Yes (Hospitalization)
  Sender: FDA-Public Use
  Company Number: PHHY2010MX46951

PATIENT
  Sex: Male
  Weight: 95 kg

DRUGS (2)
  1. TRILEPTAL [Suspect]
     Indication: EPILEPSY
     Dosage: 5 TABLETS (300 MG EACH) PER DAY
     Route: 048
     Dates: start: 20081212
  2. KEPPRA [Concomitant]

REACTIONS (3)
  - CENTRAL NERVOUS SYSTEM LESION [None]
  - CONVULSION [None]
  - PETIT MAL EPILEPSY [None]
